FAERS Safety Report 6114914-8 (Version None)
Quarter: 2009Q1

REPORT INFORMATION
  Report Type: 
  Country: None (occurrence: None)
  Receive Date: 20090313
  Receipt Date: 20090305
  Transmission Date: 20090719
  Serious: Yes (Hospitalization)
  Sender: FDA-Public Use
  Company Number: PHBS2009IL01028

PATIENT
  Age: 34 Year
  Sex: Female

DRUGS (2)
  1. METOPROLOL TARTRATE [Suspect]
     Dosage: 50 MG, BID
  2. METOPROLOL TARTRATE [Suspect]
     Dosage: 100 MG, BID

REACTIONS (5)
  - AORTIC ANEURYSM REPAIR [None]
  - AORTIC VALVE REPLACEMENT [None]
  - CAESAREAN SECTION [None]
  - DRUG EXPOSURE DURING PREGNANCY [None]
  - PREMATURE LABOUR [None]
